FAERS Safety Report 5164695-X (Version None)
Quarter: 2006Q4

REPORT INFORMATION
  Report Type: 
  Country: None (occurrence: None)
  Receive Date: 20061205
  Receipt Date: 20061124
  Transmission Date: 20070319
  Serious: Yes (Life-Threatening, Hospitalization)
  Sender: FDA-Public Use
  Company Number: DK-ELI_LILLY_AND_COMPANY-DK200611004502

PATIENT
  Age: 75 Year
  Sex: Male
  Weight: 72 kg

DRUGS (2)
  1. TADALAFIL [Suspect]
     Indication: ERECTILE DYSFUNCTION
     Dosage: 10 MG, DAILY (1/D)
     Route: 048
     Dates: start: 20040525, end: 20040525
  2. CASODEX                                 /UNK/ [Concomitant]
     Indication: PROSTATE CANCER
     Dosage: 150 MG, DAILY (1/D)
     Dates: start: 20040420

REACTIONS (3)
  - APHASIA [None]
  - HEMIPARESIS [None]
  - URINARY TRACT INFECTION [None]
